FAERS Safety Report 6546004-4 (Version None)
Quarter: 2010Q1

REPORT INFORMATION
  Report Type: 
  Country: None (occurrence: None)
  Receive Date: 20100121
  Receipt Date: 20100121
  Transmission Date: 20100710
  Serious: No
  Sender: FDA-Public Use
  Company Number: None

PATIENT
  Age: 43 Year
  Sex: Male

DRUGS (3)
  1. NOVOLIN N [Suspect]
     Indication: DIABETES MELLITUS
     Dosage: INJECTING AS DIRECTED BY PHYSICIAN
     Dates: start: 20090601, end: 20091201
  2. SIMVASTATIN [Concomitant]
  3. TOPROL-XL [Concomitant]

REACTIONS (2)
  - PRODUCT QUALITY ISSUE [None]
  - URTICARIA [None]
